FAERS Safety Report 15585340 (Version 1)
Quarter: 2018Q4

REPORT INFORMATION
  Report Type: Spontaneous
  Country: FR (occurrence: FR)
  Receive Date: 20181105
  Receipt Date: 20181105
  Transmission Date: 20190205
  Serious: Yes (Hospitalization, Other)
  Sender: FDA-Public Use
  Company Number: FR-GLAXOSMITHKLINE-B0899576A

PATIENT
  Sex: Male

DRUGS (9)
  1. REYATAZ [Suspect]
     Active Substance: ATAZANAVIR SULFATE
     Dosage: 400 MG, QD
     Route: 048
  2. LESCOL [Suspect]
     Active Substance: FLUVASTATIN SODIUM
     Indication: HYPERCHOLESTEROLAEMIA
     Dosage: UNK, Z
     Route: 048
     Dates: start: 2011
  3. LESCOL [Suspect]
     Active Substance: FLUVASTATIN SODIUM
     Dosage: 40 MG, QD
     Route: 065
  4. KIVEXA [Suspect]
     Active Substance: ABACAVIR SULFATE\LAMIVUDINE
     Indication: HIV INFECTION
     Route: 048
     Dates: start: 201106
  5. DUOPLAVIN [Suspect]
     Active Substance: ASPIRIN\CLOPIDOGREL
     Indication: PRODUCT USED FOR UNKNOWN INDICATION
     Route: 048
     Dates: start: 2011
  6. DUOPLAVIN [Suspect]
     Active Substance: ASPIRIN\CLOPIDOGREL
     Dosage: 1 DF, QD
     Route: 048
  7. REYATAZ [Suspect]
     Active Substance: ATAZANAVIR SULFATE
     Indication: HIV INFECTION
     Route: 048
     Dates: start: 201106, end: 201305
  8. LESCOL [Suspect]
     Active Substance: FLUVASTATIN SODIUM
     Dosage: 80 MG, QD
     Route: 048
     Dates: start: 2011
  9. IKOREL [Suspect]
     Active Substance: NICORANDIL
     Indication: PRODUCT USED FOR UNKNOWN INDICATION
     Route: 048
     Dates: start: 2011

REACTIONS (3)
  - Type 2 diabetes mellitus [Not Recovered/Not Resolved]
  - Lipodystrophy acquired [Unknown]
  - Off label use [Unknown]

NARRATIVE: CASE EVENT DATE: 2011
